FAERS Safety Report 7675723-1 (Version None)
Quarter: 2011Q3

REPORT INFORMATION
  Report Type: 
  Country: None (occurrence: None)
  Receive Date: 20110810
  Receipt Date: 20110808
  Transmission Date: 20111222
  Serious: Yes (Other)
  Sender: FDA-Public Use
  Company Number: US-CEPHALON-US017394

PATIENT
  Sex: Female
  Weight: 98 kg

DRUGS (9)
  1. TYLENOL-500 [Concomitant]
     Indication: ARTHRITIS
     Route: 048
  2. PROVIGIL [Suspect]
     Indication: SLEEP APNOEA SYNDROME
     Route: 048
     Dates: start: 20060401, end: 20060403
  3. PROVIGIL [Suspect]
     Route: 048
     Dates: start: 20060411, end: 20060421
  4. ZOLOFT [Concomitant]
     Route: 048
  5. CALCIUM CARBONATE [Concomitant]
     Route: 048
  6. MULTI-VITAMINS [Concomitant]
     Route: 048
  7. MAGNESIUM [Concomitant]
     Route: 048
  8. PROVIGIL [Suspect]
     Route: 048
     Dates: start: 20060404, end: 20060404
  9. PREMARIN [Concomitant]
     Route: 048

REACTIONS (8)
  - MEMORY IMPAIRMENT [None]
  - DISTURBANCE IN ATTENTION [None]
  - ABNORMAL BEHAVIOUR [None]
  - CRYING [None]
  - CHEST DISCOMFORT [None]
  - ANGER [None]
  - PSYCHIATRIC SYMPTOM [None]
  - INSOMNIA [None]
